FAERS Safety Report 9511465 (Version 1)
Quarter: 2013Q3

REPORT INFORMATION
  Report Type: Spontaneous
  Country: US (occurrence: US)
  Receive Date: 20130910
  Receipt Date: 20130910
  Transmission Date: 20140515
  Serious: Yes (Hospitalization, Other)
  Sender: FDA-Public Use
  Company Number: US-AMGEN-USASP2013062102

PATIENT
  Age: 70 Year
  Sex: Female

DRUGS (1)
  1. PROLIA [Suspect]
     Indication: OSTEOPOROSIS POSTMENOPAUSAL
     Route: 065

REACTIONS (5)
  - Nephrolithiasis [Unknown]
  - Gastric ulcer [Unknown]
  - Tooth disorder [Unknown]
  - Impaired healing [Not Recovered/Not Resolved]
  - Skin disorder [Unknown]
